FAERS Safety Report 7692836-9 (Version None)
Quarter: 2011Q3

REPORT INFORMATION
  Report Type: 
  Country: None (occurrence: None)
  Receive Date: 20110819
  Receipt Date: 20110809
  Transmission Date: 20111222
  Serious: Yes (Hospitalization, Other)
  Sender: FDA-Public Use
  Company Number: US-JNJFOC-20110806485

PATIENT
  Sex: Female
  Weight: 83.92 kg

DRUGS (6)
  1. DURAGESIC-100 [Suspect]
     Route: 062
     Dates: start: 20110101
  2. DURAGESIC-100 [Suspect]
     Route: 062
     Dates: end: 20050101
  3. DURAGESIC-100 [Suspect]
     Route: 062
     Dates: start: 20110101
  4. DURAGESIC-100 [Suspect]
     Indication: RHEUMATOID ARTHRITIS
     Route: 062
  5. DURAGESIC-100 [Suspect]
     Indication: PSORIATIC ARTHROPATHY
     Route: 062
  6. DURAGESIC-100 [Suspect]
     Route: 062
     Dates: end: 20050101

REACTIONS (6)
  - DRUG DETOXIFICATION [None]
  - DRUG WITHDRAWAL SYNDROME [None]
  - FEELING ABNORMAL [None]
  - HYPOTHYROIDISM [None]
  - STAPHYLOCOCCAL INFECTION [None]
  - DRUG INEFFECTIVE [None]
